FAERS Safety Report 13736749 (Version 1)
Quarter: 2017Q3

REPORT INFORMATION
  Report Type: Spontaneous
  Country: US (occurrence: US)
  Receive Date: 20170710
  Receipt Date: 20170710
  Transmission Date: 20171127
  Serious: No
  Sender: FDA-Public Use
  Company Number: US-009507513-1706USA010101

PATIENT
  Age: 7 Year

DRUGS (1)
  1. SINGULAIR [Suspect]
     Active Substance: MONTELUKAST SODIUM
     Dosage: UNK
     Route: 048
     Dates: start: 2011

REACTIONS (2)
  - Mouth ulceration [Not Recovered/Not Resolved]
  - Laser therapy [Unknown]

NARRATIVE: CASE EVENT DATE: 2014
